FAERS Safety Report 9792542 (Version 3)
Quarter: 2014Q1

REPORT INFORMATION
  Report Type: Spontaneous
  Country: TR (occurrence: TR)
  Receive Date: 20140102
  Receipt Date: 20140319
  Transmission Date: 20141002
  Serious: Yes (Hospitalization)
  Sender: FDA-Public Use
  Company Number: TR-ABBVIE-13P-161-1185159-00

PATIENT
  Age: 47 Year
  Sex: Female

DRUGS (3)
  1. VALPROATE SALT NOT SPECIFIED [Suspect]
     Indication: BIPOLAR DISORDER
  2. FLUPENTHIXOL DIHYDROCHLORIDE (FLUPENTHIXOL DIHYDROCHLORIDE) [Concomitant]
     Indication: PRODUCT USED FOR UNKNOWN INDICATION
  3. QUETIAPINE (QUETIAPINE) [Concomitant]
     Indication: PRODUCT USED FOR UNKNOWN INDICATION

REACTIONS (7)
  - Myoclonus [Unknown]
  - Hyperammonaemic encephalopathy [Recovered/Resolved]
  - Somnolence [Unknown]
  - Confusional state [Unknown]
  - Disorientation [Unknown]
  - Dysarthria [Unknown]
  - Ammonia increased [Unknown]
